FAERS Safety Report 8894628 (Version 1)
Quarter: 2012Q4

REPORT INFORMATION
  Report Type: 
  Country: US (occurrence: US)
  Receive Date: 20121107
  Receipt Date: 20121107
  Transmission Date: 20130627
  Serious: No
  Sender: FDA-Public Use
  Company Number: US-AMGEN-USASP2011059155

PATIENT
  Age: 57 Year
  Sex: Female

DRUGS (9)
  1. ENBREL [Suspect]
     Indication: PRODUCT USED FOR UNKNOWN INDICATION
     Dosage: 50 mg, qwk
     Route: 058
  2. DARVOCET-N [Concomitant]
  3. LISINOPRIL [Concomitant]
     Dosage: 20 mg, UNK
  4. LEXAPRO [Concomitant]
     Dosage: 10 mg, UNK
  5. ADVIL MIGRAINE [Concomitant]
     Dosage: 200 mg, UNK
  6. VESICARE [Concomitant]
     Dosage: 5 mg, UNK
  7. MULTI [Concomitant]
  8. METHOTREXATE [Concomitant]
     Dosage: 25 mg, UNK
  9. FOLIC ACID [Concomitant]
     Dosage: 5 mg, UNK

REACTIONS (1)
  - Infection [Unknown]
